FAERS Safety Report 11200653 (Version 1)
Quarter: 2015Q2

REPORT INFORMATION
  Report Type: Spontaneous
  Country: FR (occurrence: FR)
  Receive Date: 20150618
  Receipt Date: 20150618
  Transmission Date: 20150821
  Serious: Yes (Hospitalization, Other)
  Sender: FDA-Public Use
  Company Number: FR-PFIZER INC-2015199039

PATIENT
  Age: 47 Year
  Sex: Male

DRUGS (5)
  1. ZOLOFT [Suspect]
     Active Substance: SERTRALINE HYDROCHLORIDE
     Indication: DEPRESSION
     Dosage: 50 MG, DAILY
     Route: 048
     Dates: start: 20150127
  2. ZOLOFT [Suspect]
     Active Substance: SERTRALINE HYDROCHLORIDE
     Indication: PANIC DISORDER
     Dosage: 100 MG, DAILY
     Route: 048
     Dates: start: 20150428, end: 20150513
  3. ZOPICLONE [Concomitant]
     Active Substance: ZOPICLONE
     Indication: SLEEP DISORDER
     Dosage: 3.75 MG, DAILY
     Route: 048
     Dates: start: 20150102, end: 20150513
  4. ALIMEMAZINE [Concomitant]
     Active Substance: TRIMEPRAZINE
     Indication: SLEEP DISORDER
     Dosage: 10 GTT, DAILY
     Route: 048
     Dates: start: 20150102, end: 20150513
  5. PRAZEPAM [Concomitant]
     Active Substance: PRAZEPAM
     Indication: ANXIETY
     Dosage: 20 MG, DAILY
     Route: 048
     Dates: start: 20150102, end: 20150513

REACTIONS (3)
  - Delirium [Recovered/Resolved]
  - Persecutory delusion [Unknown]
  - Anxiety [Recovered/Resolved]

NARRATIVE: CASE EVENT DATE: 20150401
